FAERS Safety Report 9240757 (Version 1)
Quarter: 2013Q1

REPORT INFORMATION
  Report Type: Spontaneous
  Country: US (occurrence: None)
  Receive Date: 20121120
  Receipt Date: 20121120
  Transmission Date: 20140127
  Serious: No
  Sender: FDA-Public Use
  Company Number: 1000037345

PATIENT
  Age: 56 Year
  Sex: Female

DRUGS (7)
  1. VIIBRYD [Suspect]
     Indication: DEPRESSION
     Dosage: 10 MG (10 MG, 1 IN 1 D), ORAL
     Route: 048
     Dates: start: 20111108, end: 20111114
  2. VIIBRYD [Suspect]
     Indication: DEPRESSION
     Dosage: 40 MG (40 MG, 1 IN 1 D), ORAL
     Route: 048
     Dates: start: 20111122, end: 20120712
  3. SUMATRIPTAN (SUMATRIPTAN) (SUMATRIPTAN) [Concomitant]
  4. LOTREL (AMLODIPINE BESYLATE W/BENAZEPRIL HYDROCHLOR.) (AMLODIPINE BESYLATE W/BENAZEPRIL HYDROCHLOR.) [Concomitant]
  5. PROPRANOLOL (PROPRANOLOL) (PROPRANOLOL) [Concomitant]
  6. SEASONIQUE (EUGYNON /00022701/) (EUGYNON /00022701/) [Concomitant]
  7. LIPITOR (ATORVASTATIN CALCIUM) (ATORVASTATIN CALCIUM) [Concomitant]

REACTIONS (1)
  - Migraine [None]
